FAERS Safety Report 15331486 (Version 1)
Quarter: 2018Q4

REPORT INFORMATION
  Report Type: Spontaneous
  Country: FR (occurrence: FR)
  Receive Date: 20180829
  Receipt Date: 20180829
  Transmission Date: 20190204
  Serious: Yes (Hospitalization)
  Sender: FDA-Public Use
  Company Number: FR-TEVA-2018-FR-948890

PATIENT
  Age: 95 Year
  Sex: Female

DRUGS (7)
  1. ALLOPURINOL. [Suspect]
     Active Substance: ALLOPURINOL
     Indication: MEDICATION ERROR
     Route: 048
     Dates: start: 20180731
  2. OFLOCET 200 MG, COMPRIM? PELLICUL? S?CABLE [Suspect]
     Active Substance: OFLOXACIN
     Indication: MEDICATION ERROR
     Route: 048
     Dates: start: 20180731
  3. IRBESARTAN. [Suspect]
     Active Substance: IRBESARTAN
     Indication: MEDICATION ERROR
     Route: 048
     Dates: start: 20180731
  4. PANTOPRAZOLE [Suspect]
     Active Substance: PANTOPRAZOLE
     Indication: MEDICATION ERROR
     Route: 048
     Dates: start: 20180731
  5. EUPRESSYL 30 MG, G?LULE (URAPIDIL) [Suspect]
     Active Substance: URAPIDIL
     Indication: MEDICATION ERROR
     Route: 048
     Dates: start: 20180731
  6. BISOPROLOL (FUMARATE ACIDE DE) [Suspect]
     Active Substance: BISOPROLOL FUMARATE
     Indication: MEDICATION ERROR
     Route: 048
     Dates: start: 20180731
  7. LERCAN 10 MG, COMPRIM? PELLICUL? S?CABLE [Suspect]
     Active Substance: LERCANIDIPINE HYDROCHLORIDE
     Indication: MEDICATION ERROR
     Route: 048
     Dates: start: 20180731

REACTIONS (3)
  - Medication error [Recovered/Resolved]
  - Hypotension [Recovered/Resolved]
  - Bradycardia [Recovered/Resolved]

NARRATIVE: CASE EVENT DATE: 20180731
